FAERS Safety Report 20072678 (Version 1)
Quarter: 2021Q4

REPORT INFORMATION
  Report Type: Spontaneous
  Country: FR (occurrence: FR)
  Receive Date: 20211116
  Receipt Date: 20211116
  Transmission Date: 20220303
  Serious: Yes (Hospitalization, Congenital Anomaly, Other)
  Sender: FDA-Public Use
  Company Number: FR-ABBVIE-21K-056-4159788-00

PATIENT
  Sex: Male

DRUGS (6)
  1. VALPROATE SODIUM [Suspect]
     Active Substance: VALPROATE SODIUM
     Indication: Maternal exposure timing unspecified
     Route: 064
  2. FOLIC ACID [Concomitant]
     Active Substance: FOLIC ACID
     Indication: Maternal exposure timing unspecified
     Route: 064
  3. LAMICTAL [Concomitant]
     Active Substance: LAMOTRIGINE
     Indication: Maternal exposure timing unspecified
     Route: 064
  4. VITAMIN D [Concomitant]
     Active Substance: VITAMIN D NOS
     Indication: Product used for unknown indication
  5. FLUORINE [Concomitant]
     Active Substance: FLUORINE
     Indication: Product used for unknown indication
  6. IRON [Concomitant]
     Active Substance: IRON
     Indication: Product used for unknown indication

REACTIONS (51)
  - Bronchiolitis [Unknown]
  - Hyperthermia [Unknown]
  - Nasal congestion [Unknown]
  - Ear infection [Unknown]
  - Respiratory distress [Unknown]
  - Rhonchi [Unknown]
  - Middle insomnia [Unknown]
  - Dysphagia [Unknown]
  - Nasopharyngitis [Unknown]
  - Premature baby [Unknown]
  - Strabismus [Unknown]
  - Dysmorphism [Unknown]
  - Pectus excavatum [Unknown]
  - Skull malformation [Unknown]
  - Psychomotor retardation [Unknown]
  - Dysmorphism [Unknown]
  - Dependent personality disorder [Recovered/Resolved]
  - Behaviour disorder [Unknown]
  - Fine motor delay [Unknown]
  - Sleep terror [Unknown]
  - Sleep disorder [Unknown]
  - Anaemia postoperative [Unknown]
  - Foetal anticonvulsant syndrome [Unknown]
  - Hypotonia [Unknown]
  - Epilepsy [Unknown]
  - Anxiety [Unknown]
  - Nasopharyngitis [Unknown]
  - Oropharyngeal pain [Unknown]
  - Dry skin [Unknown]
  - Tympanic membrane disorder [Unknown]
  - Electroencephalogram abnormal [Unknown]
  - Dyssomnia [Unknown]
  - Small fontanelle [Unknown]
  - Acquired plagiocephaly [Unknown]
  - Musculoskeletal disorder [Unknown]
  - Agitation [Unknown]
  - Speech disorder developmental [Unknown]
  - Motor developmental delay [Unknown]
  - Cognitive disorder [Unknown]
  - Drooling [Unknown]
  - Dyspraxia [Unknown]
  - Hyporeflexia [Unknown]
  - Social problem [Recovering/Resolving]
  - Parasomnia [Unknown]
  - Foot deformity [Unknown]
  - Cerebral ventricle dilatation [Unknown]
  - Speech disorder developmental [Unknown]
  - Ear, nose and throat disorder [Unknown]
  - Foetal exposure during pregnancy [Unknown]
  - Amblyopia [Unknown]
  - Tremor [Unknown]

NARRATIVE: CASE EVENT DATE: 20060101
